FAERS Safety Report 4873888-8 (Version None)
Quarter: 2006Q1

REPORT INFORMATION
  Report Type: 
  Country: None (occurrence: None)
  Receive Date: 20060104
  Receipt Date: 20051221
  Transmission Date: 20060701
  Serious: Yes (Other)
  Sender: FDA-Public Use
  Company Number: 2005172562

PATIENT
  Age: 55 Year
  Sex: Male

DRUGS (9)
  1. VIAGRA [Suspect]
     Indication: ERECTILE DYSFUNCTION
     Dosage: 100 MG
     Dates: start: 20020101, end: 20030101
  2. FLEXERIL [Suspect]
     Indication: HYPOTONIA
  3. ALL OTHER THERAPEUTIC PRODUCTS (ALL OTHER THERAPEUTIC PRODUCTS) [Suspect]
     Indication: ARTHROPATHY
  4. CIALIS [Suspect]
  5. VALSARTAN [Concomitant]
  6. LASIX [Concomitant]
  7. LORTAB [Concomitant]
  8. NOVOLOG [Concomitant]
  9. LANTUS [Concomitant]

REACTIONS (9)
  - ARTHROPATHY [None]
  - BLOOD CHOLESTEROL INCREASED [None]
  - DRUG INEFFECTIVE [None]
  - KNEE ARTHROPLASTY [None]
  - OVERWEIGHT [None]
  - POST PROCEDURAL COMPLICATION [None]
  - SOMNOLENCE [None]
  - THROMBOSIS [None]
  - VISUAL ACUITY REDUCED [None]
